FAERS Safety Report 18266771 (Version 1)
Quarter: 2020Q3

REPORT INFORMATION
  Report Type: Spontaneous
  Country: CA (occurrence: CA)
  Receive Date: 20200915
  Receipt Date: 20200915
  Transmission Date: 20201103
  Serious: Yes (Life-Threatening, Hospitalization)
  Sender: FDA-Public Use
  Company Number: CA-ACCORD-200709

PATIENT
  Age: 13 Year
  Sex: Male
  Weight: 34 kg

DRUGS (11)
  1. HYDROMORPHONE/HYDROMORPHONE HYDROCHLORIDE [Concomitant]
     Active Substance: HYDROMORPHONE
  2. ONDANSETRON [Concomitant]
     Active Substance: ONDANSETRON
  3. NEULASTA [Concomitant]
     Active Substance: PEGFILGRASTIM
     Dosage: SOLUTION SUBCUTANEOUS
  4. DOXORUBICIN [Suspect]
     Active Substance: DOXORUBICIN
     Indication: OSTEOSARCOMA METASTATIC
  5. CISPLATIN. [Suspect]
     Active Substance: CISPLATIN
     Indication: OSTEOSARCOMA METASTATIC
     Dosage: SOLUTION INTRAVENOUS
  6. ATIVAN [Concomitant]
     Active Substance: LORAZEPAM
  7. PEG 3350 [Concomitant]
     Active Substance: POLYETHYLENE GLYCOL 3350
     Dosage: POWDER FOR SOLUTION ORAL
  8. PENTAMIDINE [Concomitant]
     Active Substance: PENTAMIDINE
     Dosage: INJ 300MG/VIAL BP
  9. REACTINE [Concomitant]
  10. TYLENOL [Concomitant]
     Active Substance: ACETAMINOPHEN
  11. CHLORHEXIDINE [Concomitant]
     Active Substance: CHLORHEXIDINE

REACTIONS (2)
  - Thrombocytopenia [Recovered/Resolved]
  - Febrile neutropenia [Recovered/Resolved]
